FAERS Safety Report 19768044 (Version 2)
Quarter: 2021Q4

REPORT INFORMATION
  Report Type: Report from Study
  Country: IL (occurrence: IL)
  Receive Date: 20210830
  Receipt Date: 20211110
  Transmission Date: 20220304
  Serious: Yes (Hospitalization)
  Sender: FDA-Public Use
  Company Number: IL-NOVARTISPH-NVSC2021IL191710

PATIENT
  Age: 39 Year
  Sex: Female

DRUGS (1)
  1. MAYZENT [Suspect]
     Active Substance: SIPONIMOD
     Indication: Secondary progressive multiple sclerosis
     Dosage: 1 MG, QD (4*0.25MG)
     Route: 048
     Dates: start: 20210530

REACTIONS (4)
  - Open fracture [Recovering/Resolving]
  - Wrist fracture [Recovering/Resolving]
  - Gait disturbance [Unknown]
  - Forearm fracture [Recovering/Resolving]
